FAERS Safety Report 10403052 (Version 3)
Quarter: 2014Q3

REPORT INFORMATION
  Report Type: Spontaneous
  Country: US (occurrence: US)
  Receive Date: 20140822
  Receipt Date: 20140911
  Transmission Date: 20150326
  Serious: Yes (Death, Hospitalization)
  Sender: FDA-Public Use
  Company Number: US-JNJFOC-20140819911

PATIENT
  Age: 74 Year
  Sex: Male
  Weight: 112 kg

DRUGS (8)
  1. ELIQUIS [Concomitant]
     Active Substance: APIXABAN
     Route: 048
  2. KLOR CON [Concomitant]
  3. LASIX [Concomitant]
     Active Substance: FUROSEMIDE
     Route: 048
  4. LIPITOR [Concomitant]
     Active Substance: ATORVASTATIN CALCIUM
     Route: 048
  5. AMIODARONE [Concomitant]
     Active Substance: AMIODARONE
     Route: 048
  6. VASOTEC [Concomitant]
     Active Substance: ENALAPRIL MALEATE
     Route: 048
  7. METOPROLOL [Concomitant]
     Active Substance: METOPROLOL
  8. IMBRUVICA [Suspect]
     Active Substance: IBRUTINIB
     Indication: MANTLE CELL LYMPHOMA
     Route: 048
     Dates: start: 20140801, end: 201408

REACTIONS (1)
  - Spinal cord infarction [Fatal]

NARRATIVE: CASE EVENT DATE: 20140803
